FAERS Safety Report 4536181-9 (Version None)
Quarter: 2004Q4

REPORT INFORMATION
  Report Type: 
  Country: None (occurrence: None)
  Receive Date: 20041223
  Receipt Date: 20041215
  Transmission Date: 20050328
  Serious: Yes (Other)
  Sender: FDA-Public Use
  Company Number: US-GLAXOSMITHKLINE-A0537464A

PATIENT
  Age: 5 Year
  Sex: Female

DRUGS (5)
  1. PAXIL [Suspect]
     Indication: PAIN
     Dosage: 60MG PER DAY
     Route: 048
     Dates: start: 19960101
  2. UNSPECIFIED DRUG [Concomitant]
  3. LIPITOR [Concomitant]
  4. ZANAFLEX [Concomitant]
  5. KLONOPIN [Concomitant]

REACTIONS (5)
  - CONFUSIONAL STATE [None]
  - CONVULSION [None]
  - FALL [None]
  - GAIT DISTURBANCE [None]
  - INSOMNIA [None]
